FAERS Safety Report 18310282 (Version 5)
Quarter: 2023Q4

REPORT INFORMATION
  Report Type: Report from Study
  Country: US (occurrence: US)
  Receive Date: 20200925
  Receipt Date: 20231122
  Transmission Date: 20240110
  Serious: Yes (Death, Hospitalization, Other)
  Sender: FDA-Public Use
  Company Number: US-ACADIA PHARMACEUTICALS INC.-ACA-2020-PIM-002901

PATIENT
  Age: 68 Year
  Sex: Female

DRUGS (13)
  1. NUPLAZID [Suspect]
     Active Substance: PIMAVANSERIN TARTRATE
     Indication: Parkinson^s disease
     Dosage: 34 MILLIGRAM, QD
     Route: 048
     Dates: start: 20200427
  2. NUPLAZID [Suspect]
     Active Substance: PIMAVANSERIN TARTRATE
     Indication: Parkinson^s disease psychosis
  3. ABILIFY [Concomitant]
     Active Substance: ARIPIPRAZOLE
  4. PROZAC [Concomitant]
     Active Substance: FLUOXETINE HYDROCHLORIDE
  5. BUSPIRONE [Concomitant]
     Active Substance: BUSPIRONE HYDROCHLORIDE
  6. CARBIDOPA LEVODOPA [Concomitant]
     Active Substance: CARBIDOPA\LEVODOPA
  7. ATORVASTATIN [Concomitant]
     Active Substance: ATORVASTATIN
  8. DEPAKOTE [Concomitant]
     Active Substance: DIVALPROEX SODIUM
  9. LEVOTHYROXINE [Concomitant]
     Active Substance: LEVOTHYROXINE
  10. NEURONTIN [Concomitant]
     Active Substance: GABAPENTIN
  11. PROVIGIL [Concomitant]
     Active Substance: MODAFINIL
  12. PROPRANOLOL [Concomitant]
     Active Substance: PROPRANOLOL HYDROCHLORIDE
  13. WARFARIN [Concomitant]
     Active Substance: WARFARIN

REACTIONS (5)
  - Sepsis [Recovered/Resolved]
  - Pneumonia aspiration [Recovered/Resolved]
  - Ill-defined disorder [Unknown]
  - Urinary tract infection [Unknown]
  - Peripheral swelling [Unknown]

NARRATIVE: CASE EVENT DATE: 20230918
